FAERS Safety Report 8802764 (Version 4)
Quarter: 2013Q1

REPORT INFORMATION
  Report Type: Spontaneous
  Country: US (occurrence: US)
  Receive Date: 20120921
  Receipt Date: 20130220
  Transmission Date: 20140127
  Serious: Yes (Other)
  Sender: FDA-Public Use
  Company Number: US-009507513-1203USA01171

PATIENT
  Sex: Female
  Weight: 64.85 kg

DRUGS (3)
  1. FOSAMAX [Suspect]
     Indication: OSTEOPENIA
     Dosage: UNK UNK,
     Route: 048
     Dates: start: 1996, end: 200306
  2. FOSAMAX [Suspect]
     Dosage: 70 MG, QW
     Route: 048
     Dates: start: 20020917, end: 20030606
  3. ACTONEL [Suspect]
     Dosage: 35 MG, QW
     Route: 048
     Dates: start: 200307

REACTIONS (22)
  - Femoral neck fracture [Recovered/Resolved]
  - Low turnover osteopathy [Unknown]
  - Fall [Unknown]
  - Rotator cuff syndrome [Not Recovered/Not Resolved]
  - Bursitis [Not Recovered/Not Resolved]
  - Tooth extraction [Unknown]
  - Tooth extraction [Unknown]
  - Dental prosthesis placement [Unknown]
  - Dental prosthesis placement [Unknown]
  - Periarthritis [Unknown]
  - Sneezing [Unknown]
  - Ligament sprain [Unknown]
  - Cough [Unknown]
  - Sleep disorder [Unknown]
  - Concussion [Unknown]
  - Fall [Unknown]
  - Breast pain [Unknown]
  - Postmenopause [Not Recovered/Not Resolved]
  - Plantar fasciitis [Unknown]
  - Arthralgia [Not Recovered/Not Resolved]
  - Oedema peripheral [Unknown]
  - Muscle spasms [Unknown]
